FAERS Safety Report 12966728 (Version 1)
Quarter: 2016Q4

REPORT INFORMATION
  Report Type: Spontaneous
  Country: US (occurrence: US)
  Receive Date: 20161123
  Receipt Date: 20161123
  Transmission Date: 20170207
  Serious: No
  Sender: FDA-Public Use
  Company Number: US-009507513-1611USA009167

PATIENT
  Age: 34 Year
  Sex: Female

DRUGS (1)
  1. NUVARING [Suspect]
     Active Substance: ETHINYL ESTRADIOL\ETONOGESTREL
     Indication: CONTRACEPTION
     Dosage: 1 DF, UNK 3 WEEKS AND 1 WEEK OUT
     Route: 067
     Dates: start: 2014

REACTIONS (3)
  - Abnormal withdrawal bleeding [Unknown]
  - Metrorrhagia [Unknown]
  - Weight increased [Unknown]

NARRATIVE: CASE EVENT DATE: 20161116
